FAERS Safety Report 12909027 (Version 1)
Quarter: 2016Q4

REPORT INFORMATION
  Report Type: Spontaneous
  Country: US (occurrence: US)
  Receive Date: 20161103
  Receipt Date: 20161103
  Transmission Date: 20170207
  Serious: No
  Sender: FDA-Public Use
  Company Number: US-JAZZ-2016-US-016891

PATIENT
  Sex: Female

DRUGS (67)
  1. GABAPENTIN. [Concomitant]
     Active Substance: GABAPENTIN
  2. OMEGA-3 FISH OIL [Concomitant]
     Active Substance: FISH OIL\OMEGA-3 FATTY ACIDS
  3. RESTASIS [Concomitant]
     Active Substance: CYCLOSPORINE
  4. ADVAIR HFA [Concomitant]
     Active Substance: FLUTICASONE PROPIONATE\SALMETEROL XINAFOATE
  5. IMODIUM A-D [Concomitant]
     Active Substance: LOPERAMIDE HYDROCHLORIDE
  6. NYSTATIN W/TRIAMCINOLONE [Concomitant]
  7. PRILOSEC [Concomitant]
     Active Substance: OMEPRAZOLE MAGNESIUM
  8. GUAIFENESIN. [Concomitant]
     Active Substance: GUAIFENESIN
  9. ALLEGRA [Concomitant]
     Active Substance: FEXOFENADINE HYDROCHLORIDE
  10. QUERCETIN [Concomitant]
     Active Substance: QUERCETIN
  11. XYREM [Suspect]
     Active Substance: SODIUM OXYBATE
     Dosage: DOSE ADJUSTMENTS
     Route: 048
     Dates: start: 201302, end: 201603
  12. BENADRYL ALLERGY [Concomitant]
     Active Substance: DIPHENHYDRAMINE HYDROCHLORIDE
  13. FLAXSEED [Concomitant]
     Active Substance: FLAX SEED
  14. DEXTROAMPHETAMINE. [Concomitant]
     Active Substance: DEXTROAMPHETAMINE
  15. EPINEPHRINE. [Concomitant]
     Active Substance: EPINEPHRINE
  16. LEVBID [Concomitant]
     Active Substance: HYOSCYAMINE SULFATE
  17. QNASL [Concomitant]
     Active Substance: BECLOMETHASONE DIPROPIONATE
  18. BUPROPION HCL [Concomitant]
     Active Substance: BUPROPION HYDROCHLORIDE
  19. GOLYTELY [Concomitant]
     Active Substance: POLYETHYLENE GLYCOL 3350\POTASSIUM CHLORIDE\SODIUM BICARBONATE\SODIUM CHLORIDE\SODIUM SULFATE ANHYDROUS
  20. OMNARIS [Concomitant]
     Active Substance: CICLESONIDE
  21. DEXEDRINE [Concomitant]
     Active Substance: DEXTROAMPHETAMINE SULFATE
  22. FOCALIN [Concomitant]
     Active Substance: DEXMETHYLPHENIDATE HYDROCHLORIDE
  23. PRENATAL [Concomitant]
     Active Substance: VITAMINS
  24. AYGESTIN [Concomitant]
     Active Substance: NORETHINDRONE ACETATE
  25. FOLIC ACID. [Concomitant]
     Active Substance: FOLIC ACID
  26. NORTRIPTYLINE HCL [Concomitant]
     Active Substance: NORTRIPTYLINE HYDROCHLORIDE
  27. PROBIOTIC ACIDOPHILUS [Concomitant]
     Active Substance: LACTOBACILLUS ACIDOPHILUS
  28. ASTEPRO [Concomitant]
     Active Substance: AZELASTINE HYDROCHLORIDE
  29. SKELAXIN [Concomitant]
     Active Substance: METAXALONE
  30. SYMBICORT [Concomitant]
     Active Substance: BUDESONIDE\FORMOTEROL FUMARATE DIHYDRATE
  31. METHYLCOBALAMIN. [Concomitant]
     Active Substance: METHYLCOBALAMIN
  32. WOMEN^S MULTIVITE [Concomitant]
  33. ZANTAC [Concomitant]
     Active Substance: RANITIDINE HYDROCHLORIDE
  34. CRANBERRY. [Concomitant]
     Active Substance: CRANBERRY
  35. GLUCOSAMINE + CHONDROITIN [Concomitant]
  36. XYREM [Suspect]
     Active Substance: SODIUM OXYBATE
     Dosage: 4.5 G, BID
     Route: 048
     Dates: start: 201603
  37. FLEXERIL [Concomitant]
     Active Substance: CYCLOBENZAPRINE HYDROCHLORIDE
  38. GLUCOSAMINE/MSM COMPLEX [Concomitant]
  39. METROCREAM [Concomitant]
     Active Substance: METRONIDAZOLE
  40. VITAMIN B12 [Concomitant]
     Active Substance: CYANOCOBALAMIN
  41. MAXALT [Concomitant]
     Active Substance: RIZATRIPTAN BENZOATE
  42. ASTELIN [Concomitant]
     Active Substance: AZELASTINE HYDROCHLORIDE
  43. MULTIVITAMIN [Concomitant]
     Active Substance: VITAMINS
  44. XYREM [Suspect]
     Active Substance: SODIUM OXYBATE
     Indication: NARCOLEPSY
     Dosage: 2.25 G, BID
     Route: 048
     Dates: start: 200702, end: 2007
  45. PROTONIX [Concomitant]
     Active Substance: PANTOPRAZOLE SODIUM
  46. METROGEL [Concomitant]
     Active Substance: METRONIDAZOLE
  47. STRATTERA [Concomitant]
     Active Substance: ATOMOXETINE HYDROCHLORIDE
  48. NEILMED SINUS RINSE [Concomitant]
     Active Substance: SODIUM BICARBONATE\SODIUM CHLORIDE
  49. VITAMIN C [Concomitant]
     Active Substance: ASCORBIC ACID
  50. L-METHYLFOLATE [Concomitant]
  51. AZULFIDINE [Concomitant]
     Active Substance: SULFASALAZINE
  52. DEXMETHYLPHENIDATE [Concomitant]
     Active Substance: DEXMETHYLPHENIDATE HYDROCHLORIDE
  53. PROVIGIL [Concomitant]
     Active Substance: MODAFINIL
  54. CYCLOBENZAPRINE [Concomitant]
     Active Substance: CYCLOBENZAPRINE
  55. BECLOMETHASONE [Concomitant]
     Active Substance: BECLOMETHASONE
  56. SULFASALAZINE. [Concomitant]
     Active Substance: SULFASALAZINE
  57. MESALAMINE. [Concomitant]
     Active Substance: MESALAMINE
  58. KETOCONAZOLE. [Concomitant]
     Active Substance: KETOCONAZOLE
  59. TURMERIC [Concomitant]
     Active Substance: TURMERIC
  60. XYREM [Suspect]
     Active Substance: SODIUM OXYBATE
     Indication: CATAPLEXY
     Dosage: 2.25 G, BID
     Route: 048
     Dates: start: 201301, end: 201302
  61. ALBUTEROL SULFATE. [Concomitant]
     Active Substance: ALBUTEROL SULFATE
  62. XYZAL [Concomitant]
     Active Substance: LEVOCETIRIZINE DIHYDROCHLORIDE
  63. AZELASTINE [Concomitant]
     Active Substance: AZELASTINE
  64. TOPAMAX [Concomitant]
     Active Substance: TOPIRAMATE
  65. IMITREX [Concomitant]
     Active Substance: SUMATRIPTAN SUCCINATE
  66. NORTRIPTYLINE HCL [Concomitant]
     Active Substance: NORTRIPTYLINE HYDROCHLORIDE
  67. HYOSCYAMINE. [Concomitant]
     Active Substance: HYOSCYAMINE

REACTIONS (1)
  - Unevaluable event [Not Recovered/Not Resolved]
